FAERS Safety Report 13038126 (Version 1)
Quarter: 2016Q4

REPORT INFORMATION
  Report Type: Spontaneous
  Country: US (occurrence: US)
  Receive Date: 20161218
  Receipt Date: 20161218
  Transmission Date: 20170207
  Serious: No
  Sender: FDA-Public Use
  Company Number: US-BAUSCH-BL-2015-031086

PATIENT
  Age: 67 Week
  Sex: Male

DRUGS (1)
  1. DILTIAZEM ER 360MG [Suspect]
     Active Substance: DILTIAZEM HYDROCHLORIDE
     Indication: ATRIAL FIBRILLATION
     Route: 048
     Dates: start: 2005

REACTIONS (1)
  - Palpitations [Recovering/Resolving]
